FAERS Safety Report 9815715 (Version 2)
Quarter: 2014Q1

REPORT INFORMATION
  Report Type: Spontaneous
  Country: US (occurrence: US)
  Receive Date: 20140114
  Receipt Date: 20140327
  Transmission Date: 20141002
  Serious: Yes (Hospitalization)
  Sender: FDA-Public Use
  Company Number: US-B.I. PHARMACEUTICALS,INC./RIDGEFIELD-2014-BI-01410BP

PATIENT
  Age: 57 Year
  Sex: Female
  Weight: 43.18 kg

DRUGS (10)
  1. SPIRIVA [Suspect]
     Indication: CHRONIC OBSTRUCTIVE PULMONARY DISEASE
     Dosage: 18 MCG
     Route: 055
     Dates: start: 201303
  2. ADVAIR [Concomitant]
     Indication: CHRONIC OBSTRUCTIVE PULMONARY DISEASE
     Dosage: FORMULATION: INHALATION AEROSOL; STRENGTH: 250/50; DAILY DOSE: 500/100
     Route: 055
  3. CYMBALTA [Concomitant]
     Dosage: 60 MG
     Route: 048
  4. VITAMIN D3 [Concomitant]
     Dosage: 5000 U
     Route: 048
  5. ANASPAZ [Concomitant]
     Indication: GASTROOESOPHAGEAL REFLUX DISEASE
     Dosage: 0.375 MG
     Route: 048
  6. HYDROCO/APAP [Concomitant]
     Indication: PAIN
     Dosage: STRENGTH: 5-325 MG, DOSAGE: 20-1300 MG
     Route: 048
  7. ALBUTEROL  INHALER [Concomitant]
     Indication: CHRONIC OBSTRUCTIVE PULMONARY DISEASE
     Dosage: FORMUALTION: INHALATION AEROSOL
     Route: 055
  8. COLACE [Concomitant]
     Dosage: 200 MG
     Route: 048
  9. TRAZADONE [Concomitant]
     Indication: INSOMNIA
     Dosage: 100 MG
     Route: 048
  10. PANTOPRAZOLE [Concomitant]
     Indication: GASTROOESOPHAGEAL REFLUX DISEASE
     Dosage: 20 MG
     Route: 048

REACTIONS (3)
  - Chronic obstructive pulmonary disease [Recovered/Resolved with Sequelae]
  - Decreased appetite [Not Recovered/Not Resolved]
  - Abnormal loss of weight [Not Recovered/Not Resolved]
